FAERS Safety Report 24117970 (Version 2)
Quarter: 2024Q3

REPORT INFORMATION
  Report Type: Spontaneous
  Country: AU (occurrence: AU)
  Receive Date: 20240722
  Receipt Date: 20240724
  Transmission Date: 20241017
  Serious: Yes (Death, Other)
  Sender: SANDOZ
  Company Number: None

PATIENT
  Age: 3 Month

DRUGS (9)
  1. THYMOCYTE IMMUNE GLOBULIN NOS [Suspect]
     Active Substance: THYMOCYTE IMMUNE GLOBULIN NOS
     Indication: Prophylaxis against graft versus host disease
     Dosage: 16 MG/KG
     Route: 065
  2. THYMOCYTE IMMUNE GLOBULIN NOS [Suspect]
     Active Substance: THYMOCYTE IMMUNE GLOBULIN NOS
     Indication: Immunomodulatory therapy
     Dosage: 20 MG/KG
     Route: 065
  3. FLUDARABINE PHOSPHATE [Suspect]
     Active Substance: FLUDARABINE PHOSPHATE
     Indication: Allogenic stem cell transplantation
     Dosage: 150 MG/M2
     Route: 065
  4. FLUDARABINE PHOSPHATE [Suspect]
     Active Substance: FLUDARABINE PHOSPHATE
     Dosage: 160 MG/KG
     Route: 065
  5. FLUDARABINE PHOSPHATE [Suspect]
     Active Substance: FLUDARABINE PHOSPHATE
     Indication: Osteopetrosis
     Dosage: UNK
     Route: 065
  6. THIOTEPA [Suspect]
     Active Substance: THIOTEPA
     Indication: Allogenic stem cell transplantation
     Dosage: 10 MG/KG
     Route: 065
  7. THIOTEPA [Suspect]
     Active Substance: THIOTEPA
     Indication: Osteopetrosis
     Dosage: UNK
     Route: 065
  8. TREOSULFAN [Suspect]
     Active Substance: TREOSULFAN
     Indication: Allogenic stem cell transplantation
     Dosage: UNK
     Route: 065
  9. TREOSULFAN [Suspect]
     Active Substance: TREOSULFAN
     Dosage: UNK
     Route: 065

REACTIONS (3)
  - Graft complication [Fatal]
  - Cytomegalovirus infection [Unknown]
  - Off label use [Unknown]
